FAERS Safety Report 10236300 (Version 2)
Quarter: 2014Q3

REPORT INFORMATION
  Report Type: Spontaneous
  Country: NL (occurrence: NL)
  Receive Date: 20140613
  Receipt Date: 20140711
  Transmission Date: 20150326
  Serious: Yes (Hospitalization)
  Sender: FDA-Public Use
  Company Number: NL-BAYER-2014-084388

PATIENT
  Age: 30 Year
  Sex: Female

DRUGS (3)
  1. GADOVIST 1,0 MMOL/ML [Suspect]
     Active Substance: GADOBUTROL
     Indication: LYMPHADENOPATHY
  2. GADOVIST 1,0 MMOL/ML [Suspect]
     Active Substance: GADOBUTROL
     Indication: NUCLEAR MAGNETIC RESONANCE IMAGING
     Dosage: 7.5 ML, ONCE
     Route: 042
     Dates: start: 20140602, end: 20140602
  3. GADOVIST 1,0 MMOL/ML [Suspect]
     Active Substance: GADOBUTROL
     Indication: PAROTID GLAND ENLARGEMENT

REACTIONS (7)
  - Head discomfort [Recovered/Resolved]
  - Dyspnoea [Recovered/Resolved]
  - Oropharyngeal discomfort [Recovered/Resolved]
  - Tremor [Recovered/Resolved]
  - Panic reaction [Recovered/Resolved]
  - Palpitations [Recovered/Resolved]
  - Abdominal pain upper [Recovered/Resolved]

NARRATIVE: CASE EVENT DATE: 20140602
